FAERS Safety Report 17125876 (Version 1)
Quarter: 2019Q4

REPORT INFORMATION
  Report Type: Spontaneous
  Country: US (occurrence: US)
  Receive Date: 20191208
  Receipt Date: 20191208
  Transmission Date: 20200122
  Serious: No
  Sender: FDA-Public Use
  Company Number: NVSC2019US060702

PATIENT
  Sex: Male

DRUGS (1)
  1. MEKINIST [Suspect]
     Active Substance: TRAMETINIB DIMETHYL SULFOXIDE
     Indication: RECTAL CANCER
     Dosage: 2 MG, QD
     Route: 048
     Dates: start: 20191108

REACTIONS (2)
  - Rash [Recovering/Resolving]
  - Product use in unapproved indication [Unknown]
